FAERS Safety Report 7758898-5 (Version None)
Quarter: 2011Q3

REPORT INFORMATION
  Report Type: 
  Country: None (occurrence: None)
  Receive Date: 20110915
  Receipt Date: 20110908
  Transmission Date: 20111222
  Serious: Yes (Hospitalization)
  Sender: FDA-Public Use
  Company Number: 20097387

PATIENT
  Sex: Female

DRUGS (1)
  1. LIORESAL [Suspect]
     Indication: MUSCLE SPASTICITY
     Dosage: 719.7 MCG, DAILY, INTRATHECAL
     Route: 037

REACTIONS (7)
  - ABNORMAL BEHAVIOUR [None]
  - HALLUCINATION [None]
  - COGNITIVE DISORDER [None]
  - INSOMNIA [None]
  - MUSCLE SPASTICITY [None]
  - DELIRIUM [None]
  - WITHDRAWAL SYNDROME [None]
